FAERS Safety Report 21476404 (Version 1)
Quarter: 2022Q4

REPORT INFORMATION
  Report Type: Spontaneous
  Country: US (occurrence: US)
  Receive Date: 20221019
  Receipt Date: 20221019
  Transmission Date: 20230113
  Serious: No
  Sender: FDA-Public Use
  Company Number: US-CELLTRION INC.-2021US016523

PATIENT

DRUGS (1)
  1. INFLECTRA [Suspect]
     Active Substance: INFLIXIMAB-DYYB
     Indication: Crohn^s disease
     Dosage: 10 MG/KG, MONTHLY EVERY 4 WEEKS (LAST INFUSION: 08SEP2021)
     Route: 065
     Dates: start: 20210809

REACTIONS (3)
  - Product dose omission issue [Unknown]
  - Off label use [Unknown]
  - Overdose [Unknown]
